FAERS Safety Report 10501813 (Version 2)
Quarter: 2015Q1

REPORT INFORMATION
  Report Type: Spontaneous
  Country: US (occurrence: US)
  Receive Date: 20141007
  Receipt Date: 20150203
  Transmission Date: 20150720
  Serious: Yes (Hospitalization)
  Sender: FDA-Public Use
  Company Number: US-PFIZER INC-2014272537

PATIENT
  Age: 72 Year
  Sex: Female
  Weight: 95 kg

DRUGS (3)
  1. LYRICA [Suspect]
     Active Substance: PREGABALIN
     Indication: ARTHRALGIA
     Dosage: 50 MG, 2X/DAY
     Route: 048
     Dates: start: 20141001, end: 201410
  2. LYRICA [Suspect]
     Active Substance: PREGABALIN
     Indication: ARTHRITIS
  3. DIHYDROCODEINE [Concomitant]
     Active Substance: DIHYDROCODEINE
     Indication: ARTHRALGIA
     Dosage: 15 MG, 2X/DAY

REACTIONS (10)
  - Lethargy [Recovered/Resolved]
  - Vision blurred [Not Recovered/Not Resolved]
  - Swollen tongue [Recovered/Resolved]
  - Joint swelling [Unknown]
  - Rash [Unknown]
  - Viral infection [Unknown]
  - Depression [Unknown]
  - Dry mouth [Unknown]
  - Peripheral swelling [Unknown]
  - Feeling of relaxation [Recovered/Resolved]

NARRATIVE: CASE EVENT DATE: 20141001
